FAERS Safety Report 5096030-X (Version None)
Quarter: 2006Q3

REPORT INFORMATION
  Report Type: 
  Country: None (occurrence: None)
  Receive Date: 20060905
  Receipt Date: 20060901
  Transmission Date: 20061208
  Serious: Yes (Hospitalization)
  Sender: FDA-Public Use
  Company Number: DE-GLAXOSMITHKLINE-D0050779A

PATIENT
  Age: 56 Year
  Sex: Male

DRUGS (3)
  1. SEROXAT [Suspect]
     Indication: ANXIETY
     Dosage: 10MG PER DAY
     Route: 065
     Dates: start: 20041123, end: 20041201
  2. PROMETHAZINE HCL [Suspect]
     Route: 065
     Dates: start: 20041010
  3. HALDOL [Concomitant]
     Route: 065
     Dates: start: 20041105, end: 20041121

REACTIONS (3)
  - ANXIETY [None]
  - IRRITABILITY [None]
  - RESTLESSNESS [None]
